FAERS Safety Report 6730303-7 (Version None)
Quarter: 2010Q2

REPORT INFORMATION
  Report Type: 
  Country: None (occurrence: None)
  Receive Date: 20100513
  Receipt Date: 20100427
  Transmission Date: 20101027
  Serious: Yes (Other)
  Sender: FDA-Public Use
  Company Number: 2010001816

PATIENT
  Age: 61 Year
  Sex: Male

DRUGS (2)
  1. TARCEVA [Suspect]
     Indication: DRUG USE FOR UNKNOWN INDICATION
     Dosage: ORAL
     Route: 048
  2. MORPHINE [Concomitant]

REACTIONS (1)
  - HAEMATURIA [None]
